FAERS Safety Report 8453896 (Version 3)
Quarter: 2012Q4

REPORT INFORMATION
  Report Type: 
  Country: US (occurrence: US)
  Receive Date: 20120312
  Receipt Date: 20120914
  Transmission Date: 20130627
  Serious: No
  Sender: FDA-Public Use
  Company Number: US-B.I. PHARMACEUTICALS,INC./RIDGEFIELD-2012-BP-03810BP

PATIENT
  Age: 58 Year
  Sex: Female

DRUGS (16)
  1. PRADAXA [Suspect]
     Indication: ATRIAL FIBRILLATION
     Dosage: 300 mg
     Route: 048
     Dates: start: 20110408
  2. CLONAZEPAM [Concomitant]
     Indication: ANXIETY
     Dosage: 0.25 mg
     Route: 048
  3. CLONAZEPAM [Concomitant]
     Indication: INSOMNIA
     Route: 048
  4. ZOCOR [Concomitant]
     Indication: BLOOD CHOLESTEROL INCREASED
     Dosage: 20 mg
     Route: 048
     Dates: start: 1992
  5. ZOCOR [Concomitant]
     Route: 048
  6. ATENOLOL [Concomitant]
     Indication: HYPERTENSION
     Dosage: 12.5 mg
     Route: 048
     Dates: start: 2007
  7. ATENOLOL [Concomitant]
     Route: 048
  8. HYDROCHLOROTHIAZIDE [Concomitant]
     Indication: HYPERTENSION
     Dosage: 25 mg
     Route: 048
  9. VICODIN [Concomitant]
     Indication: PAIN
     Route: 048
  10. VICODIN [Concomitant]
     Route: 048
  11. ZOLOFT [Concomitant]
     Indication: DEPRESSION
     Dosage: 200 mg
     Route: 048
     Dates: start: 2002
  12. ZOLOFT [Concomitant]
     Route: 048
  13. PAMELOR [Concomitant]
     Indication: DEPRESSION
     Dosage: 10 mg
     Route: 048
  14. PAMELOR [Concomitant]
     Route: 048
  15. SENIOR VITAMIN [Concomitant]
     Indication: PROPHYLAXIS
     Route: 048
  16. SENIOR VITAMIN [Concomitant]
     Route: 048

REACTIONS (18)
  - Hypersomnia [Not Recovered/Not Resolved]
  - Cartilage injury [Not Recovered/Not Resolved]
  - Bursa calcification [Not Recovered/Not Resolved]
  - Tendon injury [Not Recovered/Not Resolved]
  - Osteoarthritis [Not Recovered/Not Resolved]
  - Fall [Recovered/Resolved]
  - Laceration [Recovered/Resolved]
  - Haemorrhage [Recovered/Resolved]
  - Injury [Recovered/Resolved]
  - Hypoaesthesia [Recovered/Resolved]
  - Skin discolouration [Not Recovered/Not Resolved]
  - Injury [Not Recovered/Not Resolved]
  - Pain [Not Recovered/Not Resolved]
  - Skin exfoliation [Not Recovered/Not Resolved]
  - Palpitations [Recovered/Resolved]
  - Anxiety [Not Recovered/Not Resolved]
  - Dizziness [Not Recovered/Not Resolved]
  - Epistaxis [Recovered/Resolved]
